FAERS Safety Report 8852052 (Version 2)
Quarter: 2013Q1

REPORT INFORMATION
  Report Type: Spontaneous
  Country: KR (occurrence: KR)
  Receive Date: 20121022
  Receipt Date: 20130118
  Transmission Date: 20140127
  Serious: Yes (Other)
  Sender: FDA-Public Use
  Company Number: KR-JNJFOC-20121007804

PATIENT
  Sex: 0

DRUGS (4)
  1. DURAGESIC [Suspect]
     Indication: PROCEDURAL PAIN
     Route: 062
  2. PETHIDINE [Suspect]
     Indication: PAIN
     Dosage: 11.25 PLUS OR MINUS 15.62
     Route: 042
  3. PROPOFOL [Suspect]
     Indication: SEDATION
     Route: 042
  4. CIMETROPIUM BROMIDE [Suspect]
     Indication: OESOPHAGEAL DISORDER
     Route: 065

REACTIONS (5)
  - Post procedural haemorrhage [Unknown]
  - Drug ineffective [Unknown]
  - Off label use [Unknown]
  - Decreased appetite [Unknown]
  - Nausea [Unknown]
